FAERS Safety Report 11492200 (Version 1)
Quarter: 2015Q3

REPORT INFORMATION
  Report Type: Spontaneous
  Country: TR (occurrence: None)
  Receive Date: 20150909
  Receipt Date: 20150909
  Transmission Date: 20151125
  Serious: Yes (Other)
  Sender: FDA-Public Use
  Company Number: 2015TR0507

PATIENT
  Age: 14 Year
  Sex: Female

DRUGS (1)
  1. ORFADIN [Suspect]
     Active Substance: NITISINONE
     Indication: TYROSINAEMIA

REACTIONS (8)
  - Seizure [None]
  - Feeling abnormal [None]
  - Treatment noncompliance [None]
  - Hyponatraemia [None]
  - Urine delta aminolevulinate [None]
  - Hypertension [None]
  - Tachycardia [None]
  - Metabolic acidosis [None]
